FAERS Safety Report 4943355-1 (Version None)
Quarter: 2006Q1

REPORT INFORMATION
  Report Type: 
  Country: None (occurrence: None)
  Receive Date: 20060309
  Receipt Date: 20051004
  Transmission Date: 20060701
  Serious: Yes (Death)
  Sender: FDA-Public Use
  Company Number: 23100242

PATIENT
  Age: 41 Year

DRUGS (2)
  1. NOVASTAN [Suspect]
     Indication: HEPARIN-INDUCED THROMBOCYTOPENIA
  2. APROTIN [Concomitant]

REACTIONS (1)
  - CORONARY ARTERY SURGERY [None]
